FAERS Safety Report 9793171 (Version 1)
Quarter: 2014Q1

REPORT INFORMATION
  Report Type: Spontaneous
  Country: CL (occurrence: CL)
  Receive Date: 20140102
  Receipt Date: 20140102
  Transmission Date: 20141002
  Serious: Yes (Other)
  Sender: FDA-Public Use
  Company Number: CL-PFIZER INC-2013373132

PATIENT
  Sex: Female

DRUGS (4)
  1. XALATAN [Suspect]
     Indication: GLAUCOMA
     Dosage: 2 DF, 1X/DAY
     Route: 047
     Dates: start: 2005
  2. ARTIFICIAL TEARS [Concomitant]
  3. PILOCARPINE [Concomitant]
  4. VISCOTEARS [Concomitant]

REACTIONS (2)
  - Sjogren^s syndrome [Not Recovered/Not Resolved]
  - Incorrect dose administered [Not Recovered/Not Resolved]
